FAERS Safety Report 21950264 (Version 4)
Quarter: 2023Q1

REPORT INFORMATION
  Report Type: Report from Study
  Country: EE (occurrence: EE)
  Receive Date: 20230203
  Receipt Date: 20230314
  Transmission Date: 20230418
  Serious: Yes (Hospitalization)
  Sender: FDA-Public Use
  Company Number: EE-KARYOPHARM-2023KPT000575

PATIENT
  Age: 74 Year
  Sex: Female
  Weight: 88 kg

DRUGS (7)
  1. SELINEXOR [Suspect]
     Active Substance: SELINEXOR
     Indication: Plasma cell myeloma
     Dosage: 40 MG
     Route: 048
     Dates: start: 20221209, end: 20221230
  2. OXYCONTIN [Concomitant]
     Active Substance: OXYCODONE HYDROCHLORIDE
     Indication: Pain
     Dosage: 10 MG, 2 IN 1 D
     Route: 048
     Dates: start: 20221202
  3. ENALAPRIL [Concomitant]
     Active Substance: ENALAPRIL
     Indication: Hypertension
     Dosage: 10 MG, 2 IN 1 D
     Route: 048
     Dates: start: 20221121
  4. CALCIGRAN [CALCIUM CARBONATE;COLECALCIFEROL] [Concomitant]
     Indication: Mineral supplementation
     Dosage: 500 MG, 3 IN 1 D
     Route: 048
     Dates: start: 20221205
  5. VITAMIN D3 [Concomitant]
     Active Substance: CHOLECALCIFEROL
     Indication: Prophylaxis
     Dosage: 4000 IU, 1 IN 1 D
     Route: 048
     Dates: start: 20221203
  6. PANTOPRAZOLE [Concomitant]
     Active Substance: PANTOPRAZOLE
     Indication: Prophylaxis
     Dosage: 40 MG, 1 IN 1 D
     Route: 048
     Dates: start: 20221202
  7. GABAPENTIN [Concomitant]
     Active Substance: GABAPENTIN
     Indication: Pain
     Dosage: 300 MG, 1 IN 1 D
     Route: 048
     Dates: start: 20221227

REACTIONS (4)
  - Infection [Recovered/Resolved]
  - Anaemia [Recovered/Resolved]
  - Neutropenia [Recovered/Resolved]
  - Cytomegalovirus infection [Recovered/Resolved]

NARRATIVE: CASE EVENT DATE: 20230106
